FAERS Safety Report 7042195-X (Version None)
Quarter: 2010Q4

REPORT INFORMATION
  Report Type: 
  Country: None (occurrence: None)
  Receive Date: 20101013
  Receipt Date: 20101008
  Transmission Date: 20110411
  Serious: Yes (Hospitalization)
  Sender: FDA-Public Use
  Company Number: JP-EISAI INC.-E3810-03966-SPO-JP

PATIENT
  Age: 65 Year
  Sex: Male

DRUGS (2)
  1. PARIET (RABEPRAZOLE) [Suspect]
     Route: 048
  2. AZELASTINE HCL [Suspect]
     Dosage: UNKNOWN
     Route: 048

REACTIONS (1)
  - ANAEMIA [None]
